FAERS Safety Report 8278071-4 (Version None)
Quarter: 2012Q2

REPORT INFORMATION
  Report Type: 
  Country: None (occurrence: None)
  Receive Date: 20120412
  Receipt Date: 20120411
  Transmission Date: 20120825
  Serious: Yes (Hospitalization, Other)
  Sender: FDA-Public Use
  Company Number: PHHY2011US101619

PATIENT
  Age: 58 Year
  Sex: Female

DRUGS (3)
  1. CEFEPIME [Suspect]
     Indication: OSTEOMYELITIS
  2. CEFEPIME [Suspect]
     Indication: ANKLE FRACTURE
  3. VANCOMYCIN [Concomitant]
     Indication: OSTEOMYELITIS

REACTIONS (8)
  - RENAL FAILURE ACUTE [None]
  - DRUG LEVEL INCREASED [None]
  - ENCEPHALOPATHY [None]
  - MENTAL STATUS CHANGES [None]
  - DISORIENTATION [None]
  - MYOCLONUS [None]
  - HYPERKALAEMIA [None]
  - HALLUCINATION, VISUAL [None]
